FAERS Safety Report 8809190 (Version 1)
Quarter: 2012Q4

REPORT INFORMATION
  Report Type: Spontaneous
  Country: US (occurrence: None)
  Receive Date: 20120921
  Receipt Date: 20120921
  Transmission Date: 20130627
  Serious: Yes (Other)
  Sender: FDA-Public Use
  Company Number: None

PATIENT
  Age: 69 Year
  Sex: Female
  Weight: 81.65 kg

DRUGS (1)
  1. PROLIA [Suspect]
     Indication: OSTEOPOROSIS
     Dosage: 1 injection 1st. time IM
     Route: 030
     Dates: start: 20120917, end: 20120917

REACTIONS (15)
  - Bone pain [None]
  - Arthralgia [None]
  - Influenza like illness [None]
  - Feeling abnormal [None]
  - Middle insomnia [None]
  - Pruritus generalised [None]
  - Pain in extremity [None]
  - Pain in extremity [None]
  - Musculoskeletal chest pain [None]
  - Scratch [None]
  - Inflammation [None]
  - Nausea [None]
  - Vertigo [None]
  - Back pain [None]
  - Gait disturbance [None]
